FAERS Safety Report 9301743 (Version 1)
Quarter: 2013Q2

REPORT INFORMATION
  Report Type: Spontaneous
  Country: US (occurrence: US)
  Receive Date: 20130521
  Receipt Date: 20130521
  Transmission Date: 20140414
  Serious: Yes (Death, Other)
  Sender: FDA-Public Use
  Company Number: US-BIOMARINAP-US-2013-100835

PATIENT
  Sex: Female

DRUGS (1)
  1. ALDURAZYME [Suspect]
     Indication: MUCOPOLYSACCHARIDOSIS I
     Dosage: 5.8 MG, QW
     Route: 041
     Dates: start: 2012

REACTIONS (4)
  - Sepsis [Fatal]
  - Renal failure [Unknown]
  - Influenza [Unknown]
  - Transplant failure [Unknown]
